FAERS Safety Report 7736653-X (Version None)
Quarter: 2011Q3

REPORT INFORMATION
  Report Type: 
  Country: None (occurrence: None)
  Receive Date: 20110908
  Receipt Date: 20110830
  Transmission Date: 20111222
  Serious: Yes (Hospitalization, Other)
  Sender: FDA-Public Use
  Company Number: CA-JNJFOC-20110809593

PATIENT
  Sex: Female
  Weight: 63.6 kg

DRUGS (7)
  1. ATACAND [Concomitant]
  2. FOLIC ACID [Concomitant]
  3. NORVASC [Concomitant]
  4. METHOTREXATE [Concomitant]
  5. REMICADE [Suspect]
     Indication: RHEUMATOID ARTHRITIS
     Route: 042
     Dates: start: 20030806, end: 20110623
  6. RANITIDINE [Concomitant]
  7. DIDROCAL [Concomitant]

REACTIONS (1)
  - METASTATIC NEOPLASM [None]
